FAERS Safety Report 20682819 (Version 1)
Quarter: 2022Q2

REPORT INFORMATION
  Report Type: Report from Study
  Country: US (occurrence: US)
  Receive Date: 20220407
  Receipt Date: 20220407
  Transmission Date: 20220720
  Serious: Yes (Other)
  Sender: FDA-Public Use
  Company Number: US-GILEAD-2022-0576434

PATIENT
  Age: 40 Year
  Sex: Female

DRUGS (12)
  1. AZTREONAM LYSINE [Suspect]
     Active Substance: AZTREONAM LYSINE
     Indication: Cystic fibrosis
     Dosage: 75 MG, TID,28/28
     Route: 055
  2. PULMOZYME [Concomitant]
     Active Substance: DORNASE ALFA
  3. LEVEMIR [Concomitant]
     Active Substance: INSULIN DETEMIR
  4. WELLBUTRIN [Concomitant]
     Active Substance: BUPROPION HYDROCHLORIDE
  5. ALBUTEROL SULFATE [Concomitant]
     Active Substance: ALBUTEROL SULFATE
  6. MIRALAX [Concomitant]
     Active Substance: POLYETHYLENE GLYCOL 3350
  7. XYZAL [Concomitant]
     Active Substance: LEVOCETIRIZINE DIHYDROCHLORIDE
  8. VITAMINS [Concomitant]
     Active Substance: VITAMINS
  9. OMEPRAZOLE [Concomitant]
     Active Substance: OMEPRAZOLE
  10. TYLENOL [Concomitant]
     Active Substance: ACETAMINOPHEN
  11. BIOTIN [Concomitant]
     Active Substance: BIOTIN
  12. COLACE [Concomitant]
     Active Substance: DOCUSATE SODIUM

REACTIONS (2)
  - Cystic fibrosis [Unknown]
  - Sinus operation [Not Recovered/Not Resolved]

NARRATIVE: CASE EVENT DATE: 20220225
